FAERS Safety Report 19368502 (Version 1)
Quarter: 2021Q2

REPORT INFORMATION
  Report Type: Spontaneous
  Country: US (occurrence: US)
  Receive Date: 20210602
  Receipt Date: 20210602
  Transmission Date: 20210717
  Serious: No
  Sender: FDA-Public Use
  Company Number: US-ROCHE-2666850

PATIENT
  Sex: Female

DRUGS (3)
  1. OCREVUS [Suspect]
     Active Substance: OCRELIZUMAB
     Indication: PRODUCT USED FOR UNKNOWN INDICATION
     Dosage: ONGOING: UNKNOWN
     Route: 065
  2. OCREVUS [Suspect]
     Active Substance: OCRELIZUMAB
     Dosage: MAINTENANCE DOSE PART 1
     Route: 065
  3. OCREVUS [Suspect]
     Active Substance: OCRELIZUMAB
     Dosage: MAINTENANCE DOSE PART 2
     Route: 065

REACTIONS (1)
  - Pregnancy [Unknown]
